FAERS Safety Report 13841002 (Version 1)
Quarter: 2017Q3

REPORT INFORMATION
  Report Type: Report from Study
  Country: IT (occurrence: IT)
  Receive Date: 20170807
  Receipt Date: 20170807
  Transmission Date: 20171127
  Serious: Yes (Other)
  Sender: FDA-Public Use
  Company Number: IT-BAYER-2017-149929

PATIENT
  Age: 48 Year
  Sex: Female

DRUGS (1)
  1. ASPIRINA [Suspect]
     Active Substance: ASPIRIN
     Indication: HEADACHE
     Dosage: UNK

REACTIONS (1)
  - Gastric ulcer [None]
